FAERS Safety Report 24036352 (Version 3)
Quarter: 2025Q1

REPORT INFORMATION
  Report Type: Spontaneous
  Country: US (occurrence: US)
  Receive Date: 20240701
  Receipt Date: 20250220
  Transmission Date: 20250409
  Serious: No
  Sender: JOHNSON AND JOHNSON
  Company Number: US-JNJFOC-20240671232

PATIENT
  Age: 44 Year
  Sex: Male

DRUGS (1)
  1. TREMFYA [Suspect]
     Active Substance: GUSELKUMAB
     Indication: Psoriasis
     Route: 065

REACTIONS (5)
  - Device issue [Unknown]
  - Exposure via skin contact [Unknown]
  - Needle issue [Unknown]
  - Product dose omission issue [Unknown]
  - Device leakage [Unknown]

NARRATIVE: CASE EVENT DATE: 20240615
